FAERS Safety Report 8538115-9 (Version None)
Quarter: 2012Q3

REPORT INFORMATION
  Report Type: 
  Country: None (occurrence: None)
  Receive Date: 20120725
  Receipt Date: 20120717
  Transmission Date: 20120928
  Serious: Yes (Hospitalization, Other)
  Sender: FDA-Public Use
  Company Number: US-009507513-1207USA007607

PATIENT

DRUGS (10)
  1. SINEMET [Suspect]
     Indication: PARKINSON'S DISEASE
     Dosage: 3 DF, TID
     Route: 048
     Dates: start: 19990701
  2. COMTAN [Concomitant]
  3. LEXAPRO [Concomitant]
     Indication: BLOOD CHOLESTEROL
  4. LOPID [Concomitant]
  5. WELLBUTRIN [Concomitant]
     Indication: DEPRESSION
  6. REQUIP [Concomitant]
  7. MORPHINE SULFATE [Suspect]
  8. ZOLOFT [Concomitant]
  9. STALEVO 100 [Concomitant]
  10. NEXIUM [Concomitant]
     Indication: GASTROOESOPHAGEAL REFLUX DISEASE

REACTIONS (8)
  - SHOULDER ARTHROPLASTY [None]
  - FALL [None]
  - DRUG DOSE OMISSION [None]
  - ABNORMAL DREAMS [None]
  - DYSKINESIA [None]
  - DEEP BRAIN STIMULATION [None]
  - OEDEMA PERIPHERAL [None]
  - HALLUCINATION [None]
